FAERS Safety Report 9341352 (Version 1)
Quarter: 2013Q2

REPORT INFORMATION
  Report Type: Spontaneous
  Country: US (occurrence: None)
  Receive Date: 20130610
  Receipt Date: 20130610
  Transmission Date: 20140414
  Serious: Yes (Hospitalization, Disabling, Other)
  Sender: FDA-Public Use
  Company Number: None

PATIENT
  Age: 30 Year
  Sex: 0
  Weight: 54.43 kg

DRUGS (1)
  1. MONISTAT DIFLUCAN [Suspect]

REACTIONS (1)
  - No adverse event [None]
